FAERS Safety Report 5767470-8 (Version None)
Quarter: 2008Q2

REPORT INFORMATION
  Report Type: 
  Country: None (occurrence: None)
  Receive Date: 20080611
  Receipt Date: 20080611
  Transmission Date: 20081010
  Serious: Yes (Hospitalization)
  Sender: FDA-Public Use
  Company Number: None

PATIENT
  Age: 57 Year
  Sex: Female
  Weight: 83 kg

DRUGS (8)
  1. FLUDARABINE PHOSPHATE [Suspect]
     Indication: CHRONIC LYMPHOCYTIC LEUKAEMIA
     Dosage: 44.5 MG  DAY1-5 Q 28 DAYS  IV DRIP
     Route: 041
     Dates: start: 20080225, end: 20080530
  2. RITUXIMAB [Suspect]
     Dosage: 667.5 MG Q 28 DAYS IV DRIP
     Route: 041
     Dates: start: 20080225, end: 20080526
  3. ACETAMINOPHIN [Concomitant]
  4. BENADRYL [Concomitant]
  5. HYDROCORTISONE [Concomitant]
  6. ACYCLOVIR SODIUM [Concomitant]
  7. BACTRIM [Concomitant]
  8. ALLOPURINOL [Concomitant]

REACTIONS (7)
  - ANOREXIA [None]
  - ASTHENIA [None]
  - BACTERIAL INFECTION [None]
  - BLOOD CULTURE POSITIVE [None]
  - DYSPNOEA [None]
  - FATIGUE [None]
  - TREMOR [None]
